FAERS Safety Report 25632762 (Version 1)
Quarter: 2025Q3

REPORT INFORMATION
  Report Type: Spontaneous
  Country: US (occurrence: US)
  Receive Date: 20250801
  Receipt Date: 20250801
  Transmission Date: 20251021
  Serious: No
  Sender: GRIFOLS
  Company Number: US-IGSA-BIG0032602

PATIENT
  Sex: Female

DRUGS (41)
  1. GAMUNEX-C [Suspect]
     Active Substance: HUMAN IMMUNOGLOBULIN G
     Indication: Immunodeficiency common variable
     Dosage: 10 GRAM, Q.WK.
     Route: 058
  2. GAMUNEX-C [Suspect]
     Active Substance: HUMAN IMMUNOGLOBULIN G
     Dosage: 10 GRAM, Q.WK.
     Route: 058
  3. BUSPIRONE HCL [Concomitant]
     Active Substance: BUSPIRONE HYDROCHLORIDE
     Route: 048
  4. TRAZODONE HCL [Concomitant]
     Active Substance: TRAZODONE HYDROCHLORIDE
     Route: 048
  5. ELIQUIS [Concomitant]
     Active Substance: APIXABAN
  6. WELLBUTRIN XL [Concomitant]
     Active Substance: BUPROPION HYDROCHLORIDE
  7. TOPROL XL [Concomitant]
     Active Substance: METOPROLOL SUCCINATE
  8. HYDROXYZINE HYDROCHLORIDE [Concomitant]
     Active Substance: HYDROXYZINE HYDROCHLORIDE
  9. CYANOCOBALAMIN [Concomitant]
     Active Substance: CYANOCOBALAMIN
  10. CLOTRIMAZOLE [Concomitant]
     Active Substance: CLOTRIMAZOLE
  11. TRIAMCINOLONE [Concomitant]
     Active Substance: TRIAMCINOLONE
  12. BETAMETHASONE\CLOTRIMAZOLE [Concomitant]
     Active Substance: BETAMETHASONE\CLOTRIMAZOLE
  13. ASPIRIN [Concomitant]
     Active Substance: ASPIRIN
  14. BIOTIN [Concomitant]
     Active Substance: BIOTIN
  15. CHLORDIAZEPOXIDE HYDROCHLORIDE [Concomitant]
     Active Substance: CHLORDIAZEPOXIDE HYDROCHLORIDE
  16. DICLOFENAC SODIUM [Concomitant]
     Active Substance: DICLOFENAC SODIUM
  17. ESTRACE [Concomitant]
     Active Substance: ESTRADIOL
  18. GABAPENTIN [Concomitant]
     Active Substance: GABAPENTIN
  19. HYDROCODONE BITARTRATE AND ACETAMINOPHEN [Concomitant]
     Active Substance: ACETAMINOPHEN\HYDROCODONE BITARTRATE
  20. KENALOG [Concomitant]
     Active Substance: TRIAMCINOLONE ACETONIDE
  21. LUNESTA [Concomitant]
     Active Substance: ESZOPICLONE
  22. MUCINEX [Concomitant]
     Active Substance: GUAIFENESIN
  23. NEXIUM [Concomitant]
     Active Substance: ESOMEPRAZOLE MAGNESIUM
  24. OMEPRAZOLE [Concomitant]
     Active Substance: OMEPRAZOLE
  25. SYNTHROID [Concomitant]
     Active Substance: LEVOTHYROXINE SODIUM
  26. CHOLECALCIFEROL [Concomitant]
     Active Substance: CHOLECALCIFEROL
  27. XYZAL ALLERGY 24HR [Concomitant]
     Active Substance: LEVOCETIRIZINE DIHYDROCHLORIDE
  28. ZONISAMIDE [Concomitant]
     Active Substance: ZONISAMIDE
  29. BACLOFEN [Concomitant]
     Active Substance: BACLOFEN
     Route: 048
  30. LASIX [Concomitant]
     Active Substance: FUROSEMIDE
     Route: 048
  31. LEVOCETIRIZINE DIHYDROCHLORIDE [Concomitant]
     Active Substance: LEVOCETIRIZINE DIHYDROCHLORIDE
     Route: 048
  32. PANTOPRAZOLE [Concomitant]
     Active Substance: PANTOPRAZOLE
  33. POTASSIUM [Concomitant]
     Active Substance: POTASSIUM
  34. SIMVASTATIN [Concomitant]
     Active Substance: SIMVASTATIN
  35. TRAMADOL HCL [Concomitant]
     Active Substance: TRAMADOL HYDROCHLORIDE
  36. LYRICA [Concomitant]
     Active Substance: PREGABALIN
  37. LYRICA [Concomitant]
     Active Substance: PREGABALIN
  38. LEVOTHYROXINE [Concomitant]
     Active Substance: LEVOTHYROXINE
  39. SINGULAIR [Concomitant]
     Active Substance: MONTELUKAST SODIUM
  40. CHLORZOXAZONE [Concomitant]
     Active Substance: CHLORZOXAZONE
  41. LOSARTAN [Concomitant]
     Active Substance: LOSARTAN

REACTIONS (2)
  - Asthenia [Unknown]
  - Dizziness [Not Recovered/Not Resolved]
